FAERS Safety Report 18313746 (Version 2)
Quarter: 2020Q4

REPORT INFORMATION
  Report Type: Spontaneous
  Country: AT (occurrence: AT)
  Receive Date: 20200925
  Receipt Date: 20201020
  Transmission Date: 20210113
  Serious: Yes (Hospitalization, Other)
  Sender: FDA-Public Use
  Company Number: NVSC2020AT247708

PATIENT
  Sex: Female

DRUGS (2)
  1. BEOVU [Suspect]
     Active Substance: BROLUCIZUMAB-DBLL
     Indication: PRODUCT USED FOR UNKNOWN INDICATION
     Dosage: UNK
     Route: 065
     Dates: start: 20200625
  2. BEOVU [Suspect]
     Active Substance: BROLUCIZUMAB-DBLL
     Dosage: UNK
     Route: 065
     Dates: start: 20200820

REACTIONS (5)
  - Anterior chamber cell [Unknown]
  - Retinal infiltrates [Recovering/Resolving]
  - Uveitis [Recovered/Resolved with Sequelae]
  - Ocular hyperaemia [Unknown]
  - Blindness transient [Recovering/Resolving]

NARRATIVE: CASE EVENT DATE: 20200907
